FAERS Safety Report 17536640 (Version 2)
Quarter: 2020Q1

REPORT INFORMATION
  Report Type: Spontaneous
  Country: JP (occurrence: JP)
  Receive Date: 20200313
  Receipt Date: 20200322
  Transmission Date: 20200409
  Serious: No
  Sender: FDA-Public Use
  Company Number: JP-AMGEN-JPNSP2019208637

PATIENT
  Age: 55 Year
  Sex: Male

DRUGS (23)
  1. NOVORAPID [Concomitant]
     Active Substance: INSULIN ASPART
     Dosage: 5-0-3-0
     Route: 065
  2. NESP [Suspect]
     Active Substance: DARBEPOETIN ALFA
     Indication: NEPHROGENIC ANAEMIA
     Dosage: 20 MICROGRAM
     Route: 010
     Dates: end: 201911
  3. AMLODIPINE [Concomitant]
     Active Substance: AMLODIPINE BESYLATE
     Indication: HYPERTENSION
     Dosage: 10 MILLIGRAM, QD
     Route: 048
  4. AZILVA [Concomitant]
     Active Substance: AZILSARTAN KAMEDOXOMIL
     Dosage: 40 MG, QD
     Route: 048
  5. BIO-THREE [Concomitant]
     Active Substance: HERBALS
     Dosage: 2 DF
     Route: 048
  6. TENELIA [Concomitant]
     Active Substance: TENELIGLIPTIN
     Indication: TYPE 2 DIABETES MELLITUS
     Dosage: 20 MG, QD
     Route: 048
  7. NOVORAPID [Concomitant]
     Active Substance: INSULIN ASPART
     Indication: DIABETES MELLITUS
     Dosage: 5-0-3-0
     Route: 065
  8. VANCOMYCIN [Concomitant]
     Active Substance: VANCOMYCIN
     Dosage: 0.5 G, DIALYSIS DAY
     Route: 065
     Dates: start: 20191104, end: 20191111
  9. PERSANTINE [Concomitant]
     Active Substance: DIPYRIDAMOLE
     Dosage: 150 MG, BID
     Route: 048
  10. LORATADINE. [Concomitant]
     Active Substance: LORATADINE
     Indication: GASTRIC ULCER
     Dosage: 10 MG, QD
     Route: 048
  11. AZILVA [Concomitant]
     Active Substance: AZILSARTAN KAMEDOXOMIL
     Indication: HYPERTENSION
     Dosage: 40 MG, QD
     Route: 048
  12. BIO-THREE [Concomitant]
     Active Substance: HERBALS
     Indication: DIARRHOEA
     Dosage: 2 DF
     Route: 048
  13. CALFINA [Concomitant]
     Active Substance: ALFACALCIDOL
     Indication: HYPERPARATHYROIDISM SECONDARY
     Dosage: 1 UG, QD
     Route: 048
     Dates: start: 20191118
  14. CEFOPERAZONE + SULBACTAM [Concomitant]
     Active Substance: CEFOPERAZONE SODIUM\SULBACTAM
     Dosage: 1 GRAM
     Route: 065
     Dates: start: 20191104, end: 20191113
  15. NESP [Suspect]
     Active Substance: DARBEPOETIN ALFA
     Dosage: 60 MICROGRAM
     Route: 010
     Dates: start: 201911
  16. NESP [Suspect]
     Active Substance: DARBEPOETIN ALFA
     Dosage: 120 MICROGRAM
     Route: 010
     Dates: start: 201912
  17. LORATADINE. [Concomitant]
     Active Substance: LORATADINE
     Dosage: 10 MG, QD
     Route: 048
  18. NAFAMOSTAT MESILATE [Concomitant]
     Active Substance: NAFAMOSTAT MESYLATE
     Indication: HAEMODIALYSIS
     Dosage: 120 MG, 3X/WEEK, ON DIALYSIS DAY
     Route: 010
     Dates: start: 20191104
  19. FEBURIC [Concomitant]
     Active Substance: FEBUXOSTAT
     Dosage: 10 MG,  IN THE MORNING
     Route: 048
     Dates: start: 20191106, end: 20191117
  20. PERSANTINE [Concomitant]
     Active Substance: DIPYRIDAMOLE
     Indication: MYOCARDIAL INFARCTION
     Dosage: 150 MG, BID
     Route: 048
  21. BAYASPIRIN [Concomitant]
     Active Substance: ASPIRIN
     Indication: MYOCARDIAL INFARCTION
     Dosage: 100 MG, QD
     Route: 048
     Dates: start: 20191119
  22. TENELIA [Concomitant]
     Active Substance: TENELIGLIPTIN
     Dosage: 20 MG, QD
     Route: 048
  23. CALCIUM LACTATE [Concomitant]
     Active Substance: CALCIUM LACTATE
     Indication: HYPOCALCAEMIA
     Dosage: 1 G, TID
     Route: 048
     Dates: start: 20191118

REACTIONS (3)
  - Drug ineffective [Recovering/Resolving]
  - Pyrexia [Not Recovered/Not Resolved]
  - Inflammation [Recovering/Resolving]

NARRATIVE: CASE EVENT DATE: 20191102
